FAERS Safety Report 7767515-X (Version None)
Quarter: 2011Q3

REPORT INFORMATION
  Report Type: 
  Country: None (occurrence: None)
  Receive Date: 20110922
  Receipt Date: 20110913
  Transmission Date: 20111222
  Serious: Yes (Other)
  Sender: FDA-Public Use
  Company Number: US-JNJFOC-20110906482

PATIENT
  Sex: Female
  Weight: 83.24 kg

DRUGS (1)
  1. DOXIL [Suspect]
     Indication: OVARIAN CANCER
     Route: 042
     Dates: start: 20110601, end: 20110701

REACTIONS (2)
  - CARBOHYDRATE ANTIGEN 125 INCREASED [None]
  - TERMINAL STATE [None]
